FAERS Safety Report 10483251 (Version 1)
Quarter: 2014Q3

REPORT INFORMATION
  Report Type: Spontaneous
  Country: US (occurrence: US)
  Receive Date: 20140930
  Receipt Date: 20140930
  Transmission Date: 20150326
  Serious: No
  Sender: FDA-Public Use
  Company Number: US-BIOGENIDEC-2014BI098382

PATIENT
  Age: 40 Year
  Sex: Male

DRUGS (1)
  1. TECFIDERA [Suspect]
     Active Substance: DIMETHYL FUMARATE
     Indication: RELAPSING-REMITTING MULTIPLE SCLEROSIS
     Route: 048
     Dates: start: 20140830

REACTIONS (4)
  - Choking [Recovered/Resolved]
  - Hypoaesthesia [Recovered/Resolved]
  - Gait disturbance [Recovered/Resolved]
  - Multiple sclerosis relapse [Recovered/Resolved]

NARRATIVE: CASE EVENT DATE: 20140910
